FAERS Safety Report 25390836 (Version 1)
Quarter: 2025Q2

REPORT INFORMATION
  Report Type: Spontaneous
  Country: US (occurrence: US)
  Receive Date: 20250603
  Receipt Date: 20250603
  Transmission Date: 20250717
  Serious: Yes (Death, Other)
  Sender: SANOFI AVENTIS
  Company Number: US-SA-2025SA145440

PATIENT
  Age: 80 Year
  Sex: Female
  Weight: 74.55 kg

DRUGS (29)
  1. DUPIXENT [Suspect]
     Active Substance: DUPILUMAB
     Indication: Asthma
     Dosage: 300 MG, QOW
     Route: 058
     Dates: start: 20230707
  2. ALBUTEROL SULFATE [Concomitant]
     Active Substance: ALBUTEROL SULFATE
     Route: 055
     Dates: start: 20240712
  3. AMOXICILLIN\CLAVULANATE POTASSIUM [Concomitant]
     Active Substance: AMOXICILLIN\CLAVULANATE POTASSIUM
     Dosage: 1 DF, Q12H
     Route: 048
     Dates: start: 20240611
  4. AMOXICILLIN\CLAVULANATE POTASSIUM [Concomitant]
     Active Substance: AMOXICILLIN\CLAVULANATE POTASSIUM
     Dosage: 1 DF, Q12H
     Route: 048
     Dates: start: 20240617
  5. CEFTRIAXONE [Concomitant]
     Active Substance: CEFTRIAXONE
     Dates: start: 20240716
  6. LEVOFLOXACIN [Concomitant]
     Active Substance: LEVOFLOXACIN
     Dosage: 1 DF, QD
     Route: 048
     Dates: start: 20240805
  7. LOSARTAN [Concomitant]
     Active Substance: LOSARTAN
     Dosage: 1 DF, QD
     Route: 048
     Dates: start: 20230810
  8. MYRBETRIQ [Concomitant]
     Active Substance: MIRABEGRON
     Dosage: 1 DF, HS
     Route: 048
     Dates: start: 20230831
  9. PREDNISONE [Concomitant]
     Active Substance: PREDNISONE
     Route: 048
     Dates: start: 20240703
  10. SOLU-MEDROL [Concomitant]
     Active Substance: METHYLPREDNISOLONE SODIUM SUCCINATE
     Dates: start: 20240806
  11. ALBUTEROL\IPRATROPIUM [Concomitant]
     Active Substance: ALBUTEROL\IPRATROPIUM
     Route: 055
     Dates: start: 20240716
  12. WIXELA INHUB [Concomitant]
     Active Substance: FLUTICASONE PROPIONATE\SALMETEROL XINAFOATE
     Dosage: 2 DF (PUFFS), BID
     Route: 055
     Dates: start: 20240229
  13. MONTELUKAST [Concomitant]
     Active Substance: MONTELUKAST
     Dosage: 1 DF, HS
     Route: 048
     Dates: start: 20240713
  14. PREDNISONE [Concomitant]
     Active Substance: PREDNISONE
     Dosage: 1 DF, QD
     Route: 048
     Dates: start: 20240805
  15. SPIRIVA RESPIMAT [Concomitant]
     Active Substance: TIOTROPIUM BROMIDE
     Dosage: 2 DF (PUFFS), QD
     Route: 055
     Dates: start: 20231107
  16. INFLUENZA VIRUS VACCINE [Concomitant]
     Active Substance: INFLUENZA VIRUS VACCINE
     Route: 030
     Dates: start: 20230929
  17. NUCALA [Concomitant]
     Active Substance: MEPOLIZUMAB
     Indication: Asthma
  18. NORVASC [Concomitant]
     Active Substance: AMLODIPINE BESYLATE
     Indication: Hypertension
  19. OXYGEN [Concomitant]
     Active Substance: OXYGEN
     Indication: Rales
  20. FLUOXETINE HYDROCHLORIDE [Concomitant]
     Active Substance: FLUOXETINE HYDROCHLORIDE
  21. FEXOFENADINE HYDROCHLORIDE [Concomitant]
     Active Substance: FEXOFENADINE HYDROCHLORIDE
  22. CALCIUM [Concomitant]
     Active Substance: CALCIUM
  23. VITAMINS NOS [Concomitant]
     Active Substance: VITAMINS
     Dosage: UNK UNK, QD
  24. EPINEPHRINE [EPINEPHRINE HYDROCHLORIDE] [Concomitant]
  25. LOSARTAN POTASSIUM [Concomitant]
     Active Substance: LOSARTAN POTASSIUM
  26. SPIRIVA [Concomitant]
     Active Substance: TIOTROPIUM BROMIDE MONOHYDRATE
  27. IPRATROPIUM BROMIDE [Concomitant]
     Active Substance: IPRATROPIUM BROMIDE
  28. FLUOXETINE [Concomitant]
     Active Substance: FLUOXETINE HYDROCHLORIDE
     Dates: start: 20230831
  29. MONTELUKAST SODIUM [Concomitant]
     Active Substance: MONTELUKAST SODIUM

REACTIONS (9)
  - Death [Fatal]
  - Chronic respiratory failure [Unknown]
  - Fall [Unknown]
  - Exercise tolerance decreased [Unknown]
  - Dyspnoea exertional [Recovering/Resolving]
  - Cough [Recovering/Resolving]
  - Fatigue [Unknown]
  - Wheezing [Recovering/Resolving]
  - Asthma [Unknown]

NARRATIVE: CASE EVENT DATE: 20230920
